FAERS Safety Report 18699564 (Version 2)
Quarter: 2021Q1

REPORT INFORMATION
  Report Type: Spontaneous
  Country: US (occurrence: US)
  Receive Date: 20210104
  Receipt Date: 20210111
  Transmission Date: 20210419
  Serious: Yes (Other)
  Sender: FDA-Public Use
  Company Number: US-PFIZER INC-2020521356

PATIENT
  Age: 60 Year
  Sex: Female

DRUGS (3)
  1. AMITIN [Concomitant]
     Dosage: UNK
  2. XELJANZ XR [Suspect]
     Active Substance: TOFACITINIB CITRATE
     Indication: RHEUMATOID ARTHRITIS
     Dosage: 11 MG, DAILY
     Route: 048
     Dates: start: 202009
  3. AMBIEN [Concomitant]
     Active Substance: ZOLPIDEM TARTRATE
     Dosage: UNK

REACTIONS (7)
  - Abdominal discomfort [Unknown]
  - Fatigue [Unknown]
  - Headache [Unknown]
  - Joint range of motion decreased [Unknown]
  - Product dose omission in error [Unknown]
  - Pain in extremity [Unknown]
  - Tooth infection [Unknown]

NARRATIVE: CASE EVENT DATE: 202012
